FAERS Safety Report 7353208-X (Version None)
Quarter: 2011Q1

REPORT INFORMATION
  Report Type: 
  Country: None (occurrence: None)
  Receive Date: 20110310
  Receipt Date: 20110310
  Transmission Date: 20110831
  Serious: Yes (Life-Threatening, Other)
  Sender: FDA-Public Use
  Company Number: None

PATIENT
  Sex: Female
  Weight: 77.1115 kg

DRUGS (1)
  1. ZOCOR 200MG [Suspect]
     Indication: HIGH DENSITY LIPOPROTEIN
     Dosage: 200MG QD PO
     Route: 048
     Dates: start: 20100301, end: 20100801

REACTIONS (5)
  - MUSCULAR WEAKNESS [None]
  - ATROPHY [None]
  - SUDDEN DEATH [None]
  - AMYOTROPHIC LATERAL SCLEROSIS [None]
  - PERONEAL NERVE PALSY [None]
